FAERS Safety Report 7699333-5 (Version None)
Quarter: 2011Q3

REPORT INFORMATION
  Report Type: 
  Country: None (occurrence: None)
  Receive Date: 20110818
  Receipt Date: 20110818
  Transmission Date: 20111222
  Serious: No
  Sender: FDA-Public Use
  Company Number: None

PATIENT
  Age: 58 Year
  Sex: Male

DRUGS (2)
  1. DEXMETHYLPHENIDATE HCL [Suspect]
     Dates: start: 20100504, end: 20100508
  2. ESSENTIAL ENZYMES [Suspect]
     Dates: start: 20100415, end: 20100508

REACTIONS (7)
  - LIVER INJURY [None]
  - DIALYSIS [None]
  - HEPATOCELLULAR INJURY [None]
  - PANCYTOPENIA [None]
  - ASCITES [None]
  - RENAL FAILURE ACUTE [None]
  - MULTI-ORGAN FAILURE [None]
